FAERS Safety Report 9270093 (Version 1)
Quarter: 2013Q2

REPORT INFORMATION
  Report Type: Spontaneous
  Country: FR (occurrence: FR)
  Receive Date: 20130503
  Receipt Date: 20130503
  Transmission Date: 20140414
  Serious: Yes (Hospitalization)
  Sender: FDA-Public Use
  Company Number: FR-JNJFOC-20130414772

PATIENT
  Age: 82 Year
  Sex: Male

DRUGS (3)
  1. ZYTIGA [Suspect]
     Indication: PROSTATE CANCER
     Route: 048
     Dates: start: 201301
  2. PREDNISONE [Concomitant]
     Indication: PROSTATE CANCER
     Route: 048
  3. PREDNISOLONE [Concomitant]
     Indication: PROSTATE CANCER
     Route: 048

REACTIONS (2)
  - Diverticulitis [Unknown]
  - Oedema peripheral [Recovered/Resolved]
